FAERS Safety Report 9198817 (Version 1)
Quarter: 2013Q1

REPORT INFORMATION
  Report Type: Spontaneous
  Country: ES (occurrence: ES)
  Receive Date: 20130329
  Receipt Date: 20130329
  Transmission Date: 20140127
  Serious: Yes (Hospitalization)
  Sender: FDA-Public Use
  Company Number: ES-009507513-1303ESP010477

PATIENT
  Age: 58 Year
  Sex: Female
  Weight: 55 kg

DRUGS (4)
  1. VICTRELIS [Suspect]
     Indication: HEPATITIS C
     Route: 048
     Dates: start: 201202, end: 201210
  2. PEGINTRON [Concomitant]
     Indication: HEPATITIS C
     Dosage: 100 MICROGRAM, QW
     Route: 058
     Dates: start: 201202, end: 201301
  3. RIBAVIRIN [Concomitant]
     Indication: HEPATITIS C
     Route: 048
     Dates: start: 201202, end: 201301
  4. OMEPRAZOLE [Concomitant]
     Indication: DYSPEPSIA
     Dosage: UNK
     Route: 048
     Dates: start: 201111

REACTIONS (6)
  - Rash [Recovered/Resolved]
  - Urinary tract infection [Recovered/Resolved]
  - Diabetes mellitus [Not Recovered/Not Resolved]
  - Anaemia [Recovered/Resolved]
  - Hyponatraemia [Recovered/Resolved]
  - Liver injury [Unknown]
